FAERS Safety Report 4473158-6 (Version None)
Quarter: 2004Q4

REPORT INFORMATION
  Report Type: 
  Country: None (occurrence: None)
  Receive Date: 20041008
  Receipt Date: 20040929
  Transmission Date: 20050328
  Serious: Yes (Disabling)
  Sender: FDA-Public Use
  Company Number: 2004IM000778

PATIENT
  Age: 42 Year
  Sex: Male

DRUGS (1)
  1. ADVAFERON (A643_INTERFERON ALFACON-1) [Suspect]
     Indication: HEPATITIS C
     Dosage: 18 MU; QD; INTRAMUSCULAR
     Route: 030
     Dates: start: 20031105, end: 20040524

REACTIONS (2)
  - INJECTION SITE ULCER [None]
  - PAIN [None]
